FAERS Safety Report 9265634 (Version 1)
Quarter: 2013Q2

REPORT INFORMATION
  Report Type: Spontaneous
  Country: IT (occurrence: IT)
  Receive Date: 20130501
  Receipt Date: 20130501
  Transmission Date: 20140414
  Serious: Yes (Other)
  Sender: FDA-Public Use
  Company Number: IT-MYLANLABS-2013S1008475

PATIENT
  Age: 3 Year
  Sex: Male
  Weight: 14 kg

DRUGS (2)
  1. ACICLOVIR [Suspect]
     Indication: VARICELLA
     Route: 048
     Dates: start: 20130408, end: 20130408
  2. ACICLOVIR [Suspect]
     Indication: OPHTHALMIC HERPES SIMPLEX
     Route: 048
     Dates: start: 20130408, end: 20130408

REACTIONS (6)
  - Agitation [Recovered/Resolved]
  - Cold sweat [Recovered/Resolved]
  - Crying [Recovered/Resolved]
  - Disorientation [Recovered/Resolved]
  - Tremor [Recovered/Resolved]
  - Sensory level abnormal [Recovered/Resolved]
